FAERS Safety Report 4913076-X (Version None)
Quarter: 2006Q1

REPORT INFORMATION
  Report Type: 
  Country: None (occurrence: None)
  Receive Date: 20060210
  Receipt Date: 20060130
  Transmission Date: 20060701
  Serious: Yes (Hospitalization, Other)
  Sender: FDA-Public Use
  Company Number: 2006015361

PATIENT
  Sex: Male
  Weight: 79.3795 kg

DRUGS (2)
  1. LIPITOR [Suspect]
     Indication: BLOOD CHOLESTEROL INCREASED
     Dosage: 40 MG (40 MG, 1 IN 1 D),
     Dates: start: 19970101, end: 19970101
  2. ATENOLOL [Suspect]
     Indication: HYPERTENSION

REACTIONS (10)
  - BLOOD CREATINE PHOSPHOKINASE INCREASED [None]
  - CAROTID ARTERY OCCLUSION [None]
  - GOUT [None]
  - HYPERTENSION [None]
  - LOSS OF CONSCIOUSNESS [None]
  - MYALGIA [None]
  - NERVE ROOT COMPRESSION [None]
  - PROSTATE CANCER [None]
  - SCIATICA [None]
  - SPINAL FRACTURE [None]
